FAERS Safety Report 8925270 (Version 1)
Quarter: 2012Q4

REPORT INFORMATION
  Report Type: 
  Country: JP (occurrence: JP)
  Receive Date: 20121126
  Receipt Date: 20121126
  Transmission Date: 20130627
  Serious: Yes (Life-Threatening, Hospitalization)
  Sender: FDA-Public Use
  Company Number: JP-ASTRAZENECA-2012SE82172

PATIENT
  Age: 70 Year
  Sex: Female
  Weight: 62 kg

DRUGS (11)
  1. ECARD COMBINATION TABLETS HD [Suspect]
     Indication: HYPERTENSION
     Route: 048
     Dates: start: 20110520, end: 20121016
  2. FAMOSTAGINE [Suspect]
     Route: 048
     Dates: start: 20080516, end: 20121012
  3. CRESTOR [Concomitant]
     Route: 048
     Dates: start: 20081015, end: 20121016
  4. ELPINAN [Concomitant]
     Route: 048
     Dates: start: 20081128, end: 20121016
  5. LYSOZYME HYDROCHLORIDE TOWA [Concomitant]
     Route: 048
     Dates: start: 20100413
  6. LEFTOSE [Concomitant]
     Route: 048
     Dates: end: 20121016
  7. VANBROAN [Concomitant]
     Route: 048
     Dates: start: 20100413, end: 20121016
  8. CRAVIT [Concomitant]
     Route: 048
     Dates: start: 20121009
  9. CRAVIT [Concomitant]
     Route: 048
     Dates: start: 20121012, end: 20121016
  10. CALONAL [Concomitant]
     Route: 048
     Dates: start: 20121006, end: 20121007
  11. CALONAL [Concomitant]
     Route: 048
     Dates: end: 20121016

REACTIONS (3)
  - White blood cell count decreased [Recovered/Resolved]
  - Pyrexia [Recovered/Resolved]
  - Granulocyte count decreased [Recovered/Resolved]
